FAERS Safety Report 16654848 (Version 1)
Quarter: 2019Q3

REPORT INFORMATION
  Report Type: Spontaneous
  Country: FR (occurrence: FR)
  Receive Date: 20190801
  Receipt Date: 20190801
  Transmission Date: 20191004
  Serious: Yes (Other)
  Sender: FDA-Public Use
  Company Number: FR-AMGEN-FRASP2019119789

PATIENT
  Age: 53 Year
  Sex: Female

DRUGS (1)
  1. PROLIA [Suspect]
     Active Substance: DENOSUMAB
     Indication: OSTEOPOROSIS PROPHYLAXIS
     Dosage: 60 MILLIGRAM, 1 TRIMESTER
     Route: 058
     Dates: start: 201505, end: 201709

REACTIONS (2)
  - Spinal fracture [Recovering/Resolving]
  - Spinal compression fracture [Recovering/Resolving]

NARRATIVE: CASE EVENT DATE: 201809
